FAERS Safety Report 14298134 (Version 7)
Quarter: 2018Q1

REPORT INFORMATION
  Report Type: Report from Study
  Country: CO (occurrence: CO)
  Receive Date: 20171218
  Receipt Date: 20180226
  Transmission Date: 20180509
  Serious: Yes (Hospitalization)
  Sender: FDA-Public Use
  Company Number: CO-JNJFOC-20171125087

PATIENT
  Age: 83 Year
  Sex: Male
  Weight: 70 kg

DRUGS (2)
  1. DARZALEX [Suspect]
     Active Substance: DARATUMUMAB
     Indication: PLASMA CELL MYELOMA
     Route: 042
     Dates: start: 20171118, end: 20180104
  2. DARZALEX [Suspect]
     Active Substance: DARATUMUMAB
     Indication: PLASMA CELL MYELOMA
     Route: 042
     Dates: start: 20171118

REACTIONS (26)
  - Herpes virus infection [Recovering/Resolving]
  - Red blood cell count decreased [Recovering/Resolving]
  - Off label use [Unknown]
  - Fatigue [Unknown]
  - Drug dose omission [Recovered/Resolved]
  - Incorrect drug administration rate [Unknown]
  - Vomiting [Recovered/Resolved]
  - Haemoglobin decreased [Recovering/Resolving]
  - Infusion related reaction [Recovered/Resolved]
  - Bronchitis [Not Recovered/Not Resolved]
  - Dyspnoea [Recovered/Resolved]
  - Anaemia [Recovering/Resolving]
  - Oxygen saturation decreased [Recovering/Resolving]
  - Muscular weakness [Not Recovered/Not Resolved]
  - Thrombocytopenia [Recovering/Resolving]
  - Diarrhoea [Not Recovered/Not Resolved]
  - Pyrexia [Recovering/Resolving]
  - Chills [Recovered/Resolved]
  - Thrombocytopenia [Recovered/Resolved]
  - Blood test abnormal [Not Recovered/Not Resolved]
  - Infusion related reaction [Unknown]
  - Off label use [Unknown]
  - Decreased appetite [Unknown]
  - Product preparation error [Unknown]
  - Hospitalisation [Recovered/Resolved]
  - Arthralgia [Unknown]

NARRATIVE: CASE EVENT DATE: 20171118
